FAERS Safety Report 9302693 (Version 1)
Quarter: 2013Q2

REPORT INFORMATION
  Report Type: Report from Study
  Country: MX (occurrence: MX)
  Receive Date: 20130522
  Receipt Date: 20130522
  Transmission Date: 20140414
  Serious: Yes (Death, Hospitalization)
  Sender: FDA-Public Use
  Company Number: PHHY2013MX050763

PATIENT
  Age: 72 Year
  Sex: Male

DRUGS (12)
  1. CO-DIOVAN [Suspect]
     Indication: HYPERTENSION
     Dosage: 1 DF, DAILY (300MG VALS, 25MG HCTZ)
     Route: 048
     Dates: start: 201303, end: 20130417
  2. TEGRETOL [Suspect]
     Indication: PAIN
     Dosage: 2 DF, DAILY
     Dates: start: 201304
  3. DIOVAN [Suspect]
  4. BROXOL [Concomitant]
     Indication: LUNG DISORDER
     Dosage: 3 DF (10 ML), DAILY
     Dates: start: 201302, end: 201304
  5. CEFALEXIN [Concomitant]
     Indication: PHARYNGITIS
     Dosage: 3 DF,DAILY
     Dates: start: 201302, end: 201304
  6. FUROSEMIDE [Concomitant]
     Indication: OEDEMA PERIPHERAL
     Dosage: 2 DF, DAILY
     Dates: start: 201302, end: 201303
  7. THEOPHYLLINE [Concomitant]
     Dosage: 2 DF, DAILY
     Dates: start: 201303, end: 201304
  8. TESTOSTERONE [Concomitant]
     Indication: MEMORY IMPAIRMENT
     Dosage: 1 DF, DAILY
     Dates: start: 201302, end: 201304
  9. FLUCONAZOLE [Concomitant]
     Indication: INFECTION
     Dosage: 1 DF, DAILY
     Dates: start: 201303, end: 201304
  10. AMLODIPINE [Concomitant]
     Indication: BLOOD GLUCOSE ABNORMAL
     Dosage: 2 DF, DAILY
     Dates: start: 201303, end: 201304
  11. IGROTON [Concomitant]
     Indication: RENAL DISORDER
     Dosage: 1 DF, DAILY
     Dates: start: 201303, end: 201304
  12. COMBIVENT [Concomitant]
     Indication: LUNG DISORDER
     Dosage: (SOMETIMES)
     Dates: start: 201303, end: 201304

REACTIONS (4)
  - Lung disorder [Fatal]
  - Coagulopathy [Fatal]
  - Blood glucose increased [Fatal]
  - Disease complication [Fatal]
